FAERS Safety Report 12493442 (Version 1)
Quarter: 2016Q2

REPORT INFORMATION
  Report Type: Spontaneous
  Country: RU (occurrence: RU)
  Receive Date: 20160623
  Receipt Date: 20160623
  Transmission Date: 20160815
  Serious: Yes (Other)
  Sender: FDA-Public Use
  Company Number: RU-TEVA-667482ISR

PATIENT
  Age: 75 Year
  Sex: Male

DRUGS (1)
  1. CORINFAR [Suspect]
     Active Substance: NIFEDIPINE
     Dosage: 10 MILLIGRAM DAILY;
     Dates: start: 2006, end: 2015

REACTIONS (7)
  - Dizziness [Not Recovered/Not Resolved]
  - Parkinson^s disease [Not Recovered/Not Resolved]
  - Headache [Not Recovered/Not Resolved]
  - Fatigue [Not Recovered/Not Resolved]
  - Somnolence [Not Recovered/Not Resolved]
  - Parkinsonism [Not Recovered/Not Resolved]
  - Asthenia [Not Recovered/Not Resolved]

NARRATIVE: CASE EVENT DATE: 2015
